FAERS Safety Report 7485697-4 (Version None)
Quarter: 2011Q2

REPORT INFORMATION
  Report Type: 
  Country: None (occurrence: None)
  Receive Date: 20110509
  Receipt Date: 20110429
  Transmission Date: 20111010
  Serious: Yes (Other)
  Sender: FDA-Public Use
  Company Number: DSA_45502_2011

PATIENT
  Sex: Male

DRUGS (3)
  1. ALCOHOL [Suspect]
     Indication: PRODUCT USED FOR UNKNOWN INDICATION
     Dosage: (DF)
  2. WELLBUTRIN XL [Suspect]
     Indication: DEPRESSION
     Dosage: (200 MG BID), (150 MG BID)
     Dates: start: 20100129, end: 20100225
  3. WELLBUTRIN XL [Suspect]
     Indication: DEPRESSION
     Dosage: (200 MG BID), (150 MG BID)
     Dates: start: 20100226, end: 20100406

REACTIONS (22)
  - OCULAR HYPERAEMIA [None]
  - HEART RATE INCREASED [None]
  - LIP INJURY [None]
  - GENERALISED ANXIETY DISORDER [None]
  - HOSTILITY [None]
  - TREMOR [None]
  - AGITATION [None]
  - ANGER [None]
  - IRRITABILITY [None]
  - MAJOR DEPRESSION [None]
  - AGGRESSION [None]
  - DYSARTHRIA [None]
  - RESPIRATORY RATE INCREASED [None]
  - ANXIETY [None]
  - DELIRIUM [None]
  - PHYSICAL ASSAULT [None]
  - FALL [None]
  - VICTIM OF ABUSE [None]
  - ABNORMAL BEHAVIOUR [None]
  - FLUSHING [None]
  - ALCOHOL POISONING [None]
  - CONFUSIONAL STATE [None]
